FAERS Safety Report 5271363-2 (Version None)
Quarter: 2007Q1

REPORT INFORMATION
  Report Type: 
  Country: None (occurrence: None)
  Receive Date: 20070321
  Receipt Date: 20070313
  Transmission Date: 20070707
  Serious: Yes (Hospitalization)
  Sender: FDA-Public Use
  Company Number: US-SANOFI-SYNTHELABO-A03200701939

PATIENT
  Sex: Female

DRUGS (10)
  1. MAGNESIUM [Concomitant]
     Dosage: UNK
     Route: 065
  2. CALCIUM [Concomitant]
     Dosage: UNK
     Route: 065
  3. ELOXATIN [Suspect]
     Indication: BILE DUCT CANCER
     Route: 042
     Dates: start: 20070215, end: 20070215
  4. ELOXATIN [Suspect]
     Route: 042
     Dates: start: 20070228, end: 20070228
  5. TYLENOL [Concomitant]
     Route: 048
  6. METOPROLOL SUCCINATE [Concomitant]
     Dosage: UNK
     Route: 048
  7. FENTANYL [Concomitant]
     Dosage: UNK
     Route: 061
  8. ALOXI [Suspect]
     Indication: NAUSEA
     Dosage: UNK
     Route: 042
     Dates: start: 20070215, end: 20070215
  9. ALOXI [Suspect]
     Dosage: UNK
     Route: 042
     Dates: start: 20070228, end: 20070228
  10. ZOMETA [Concomitant]
     Dosage: UNK
     Route: 042
     Dates: start: 20070215, end: 20070215

REACTIONS (5)
  - CONVULSION [None]
  - DYSGEUSIA [None]
  - FLUSHING [None]
  - HYPOTENSION [None]
  - INCONTINENCE [None]
